FAERS Safety Report 20056409 (Version 2)
Quarter: 2021Q4

REPORT INFORMATION
  Report Type: Report from Study
  Country: EG (occurrence: EG)
  Receive Date: 20211111
  Receipt Date: 20211115
  Transmission Date: 20220303
  Serious: Yes (Other)
  Sender: FDA-Public Use
  Company Number: EG-NOVARTISPH-NVSC2021EG252691

PATIENT
  Age: 27 Year
  Sex: Male

DRUGS (3)
  1. COSENTYX [Suspect]
     Active Substance: SECUKINUMAB
     Indication: Ankylosing spondylitis
     Dosage: 150 MG, QMO
     Route: 065
     Dates: start: 20210716
  2. ASIAN GINSENG [Concomitant]
     Active Substance: ASIAN GINSENG
     Dosage: 1 DF, QD
     Route: 048
     Dates: start: 20211019
  3. CARNIVITA FORTE [Concomitant]
     Indication: Product used for unknown indication
     Dosage: 1 DF, QD
     Route: 048
     Dates: start: 20211026

REACTIONS (7)
  - Nephrolithiasis [Recovered/Resolved]
  - Cough [Recovering/Resolving]
  - Fatigue [Recovered/Resolved]
  - Haemoglobin decreased [Unknown]
  - White blood cell count decreased [Unknown]
  - Product use issue [Recovering/Resolving]
  - Drug ineffective [Not Recovered/Not Resolved]

NARRATIVE: CASE EVENT DATE: 20210716
